FAERS Safety Report 24191379 (Version 1)
Quarter: 2024Q3

REPORT INFORMATION
  Report Type: Spontaneous
  Country: FR (occurrence: FR)
  Receive Date: 20240808
  Receipt Date: 20240808
  Transmission Date: 20241016
  Serious: Yes (Other)
  Sender: BRISTOL MYERS SQUIBB
  Company Number: FR-BRISTOL-MYERS SQUIBB COMPANY-2024-107502

PATIENT
  Age: 63 Year
  Sex: Male
  Weight: 86 kg

DRUGS (5)
  1. OPDIVO [Suspect]
     Active Substance: NIVOLUMAB
     Indication: Non-small cell lung cancer stage IIIA
     Dosage: OVER 30 MINUTES IN COMBINATION WITH PLATINUM-BASED CHEMOTHERAPY EVERY 3 WEEKS FOR 3 CYCLES
     Route: 042
     Dates: end: 20240618
  2. CARBOPLATIN [Concomitant]
     Active Substance: CARBOPLATIN
     Indication: Non-small cell lung cancer stage IIIA
     Dosage: AUC 5, EVERY 21 DAYS
     Route: 042
     Dates: start: 20240429, end: 20240618
  3. TAXOL [Concomitant]
     Active Substance: PACLITAXEL
     Indication: Non-small cell lung cancer stage IIIA
     Dosage: EVERY 21 DAYS
     Route: 042
     Dates: start: 20240429, end: 20240628
  4. VENLAFAXINE [Concomitant]
     Active Substance: VENLAFAXINE HYDROCHLORIDE
     Indication: Product used for unknown indication
     Dosage: 75 X 2
  5. FENOFIBRATE [Concomitant]
     Active Substance: FENOFIBRATE
     Indication: Product used for unknown indication

REACTIONS (1)
  - Psoriatic arthropathy [Unknown]

NARRATIVE: CASE EVENT DATE: 20240515
